FAERS Safety Report 7378914-2 (Version None)
Quarter: 2011Q1

REPORT INFORMATION
  Report Type: 
  Country: None (occurrence: None)
  Receive Date: 20110328
  Receipt Date: 20110318
  Transmission Date: 20110831
  Serious: Yes (Other)
  Sender: FDA-Public Use
  Company Number: US-ASTRAZENECA-2011SE10468

PATIENT
  Age: 23182 Day
  Sex: Female
  Weight: 72.6 kg

DRUGS (15)
  1. SEROQUEL [Suspect]
     Route: 048
  2. ARICEPT [Concomitant]
     Route: 065
  3. SIMVASTATIN [Concomitant]
     Route: 065
  4. LEVOTHYROXINE SODIUM [Concomitant]
     Route: 065
  5. LEVOTHYROXINE SODIUM [Concomitant]
  6. PROPRANOLOL [Concomitant]
     Indication: TREMOR
     Route: 065
  7. SEROQUEL [Suspect]
     Route: 048
     Dates: start: 19990901
  8. CRESTOR [Concomitant]
     Indication: HYPERCHOLESTEROLAEMIA
     Route: 048
  9. PROZAC [Concomitant]
     Indication: DEPRESSION
     Route: 065
  10. LISINOPRIL [Concomitant]
     Route: 065
  11. DEPAKOTE [Concomitant]
     Indication: BIPOLAR DISORDER
     Route: 065
     Dates: start: 19990101
  12. RANITIDINE [Concomitant]
  13. SEROQUEL [Suspect]
     Indication: BIPOLAR DISORDER
     Route: 048
  14. SEROQUEL [Suspect]
     Dosage: VARIED FROM 400 TO 600 DAILY
     Route: 048
  15. ABILIFY [Concomitant]
     Indication: MOOD SWINGS
     Route: 065
     Dates: start: 20100201

REACTIONS (5)
  - PARKINSON'S DISEASE [None]
  - TRANSIENT ISCHAEMIC ATTACK [None]
  - ISCHAEMIC STROKE [None]
  - DELIRIUM [None]
  - CONFUSIONAL STATE [None]
